FAERS Safety Report 18267486 (Version 1)
Quarter: 2020Q3

REPORT INFORMATION
  Report Type: Spontaneous
  Country: US (occurrence: US)
  Receive Date: 20200915
  Receipt Date: 20200915
  Transmission Date: 20201103
  Serious: No
  Sender: FDA-Public Use
  Company Number: US-LUPIN PHARMACEUTICALS INC.-2020-05641

PATIENT
  Sex: Female
  Weight: 61.22 kg

DRUGS (1)
  1. CLOBETASOL PROPIONATE TOPICAL SOLUTION USP, 0.05 % [Suspect]
     Active Substance: CLOBETASOL PROPIONATE
     Indication: PSORIASIS
     Dosage: 0.05 PERCENT
     Route: 048
     Dates: start: 202002, end: 20200827

REACTIONS (4)
  - Intentional product use issue [Unknown]
  - Product use issue [Unknown]
  - Alopecia [Not Recovered/Not Resolved]
  - Product use in unapproved indication [Unknown]
